FAERS Safety Report 5241585-5 (Version None)
Quarter: 2007Q1

REPORT INFORMATION
  Report Type: 
  Country: None (occurrence: None)
  Receive Date: 20070220
  Receipt Date: 20070209
  Transmission Date: 20070707
  Serious: Yes (Life-Threatening, Disabling)
  Sender: FDA-Public Use
  Company Number: 200513137FR

PATIENT
  Age: 82 Year
  Sex: Male
  Weight: 65 kg

DRUGS (7)
  1. KETEK [Suspect]
     Route: 048
     Dates: start: 20050210, end: 20050210
  2. KETEK [Suspect]
     Route: 048
     Dates: start: 20050210, end: 20050210
  3. RHINOFLUIMUCIL                     /00851901/ [Concomitant]
     Dates: start: 20050210
  4. ASPEGIC 1000 [Concomitant]
     Dates: start: 20050210
  5. MESTINON [Concomitant]
     Route: 048
  6. VASTAREL [Concomitant]
  7. CLAMOXYL                           /00249601/ [Concomitant]
     Dates: end: 20050201

REACTIONS (12)
  - BRONCHOSPASM [None]
  - COMA [None]
  - FATIGUE [None]
  - HEPATOCELLULAR DAMAGE [None]
  - HYPOTONIA [None]
  - LOSS OF CONSCIOUSNESS [None]
  - MYASTHENIA GRAVIS [None]
  - MYDRIASIS [None]
  - OXYGEN SATURATION DECREASED [None]
  - PNEUMONIA ASPIRATION [None]
  - RESPIRATORY FAILURE [None]
  - RESPIRATORY PARALYSIS [None]
